FAERS Safety Report 7915796 (Version 4)
Quarter: 2012Q4

REPORT INFORMATION
  Report Type: Report from Study
  Country: CA (occurrence: CA)
  Receive Date: 20110426
  Receipt Date: 20121108
  Transmission Date: 20130627
  Serious: No
  Sender: FDA-Public Use
  Company Number: CA-GILEAD-2011-0038755

PATIENT
  Age: 41 Year
  Sex: Male

DRUGS (6)
  1. EFAVIRENZ/EMTRICITABINE/TENOFOVIR DISOPROXIL FUMARATE [Suspect]
     Indication: HIV INFECTION
     Route: 048
     Dates: start: 20110401, end: 20110412
  2. ZANTAC [Concomitant]
     Indication: RASH
  3. BENADRYL [Concomitant]
     Indication: RASH
  4. IMOVANE [Concomitant]
     Dates: start: 20110401
  5. MULTIVITAMIN [Concomitant]
  6. SELENIUM [Concomitant]

REACTIONS (9)
  - Hypersensitivity [Recovered/Resolved]
  - Rash maculo-papular [None]
  - Rash pruritic [None]
  - Diarrhoea [None]
  - Pyrexia [None]
  - Chills [None]
  - Nausea [None]
  - Tachycardia [None]
  - Eye pain [None]
